FAERS Safety Report 9410375 (Version 4)
Quarter: 2013Q3

REPORT INFORMATION
  Report Type: Report from Study
  Country: PR (occurrence: PR)
  Receive Date: 20130719
  Receipt Date: 20130822
  Transmission Date: 20140515
  Serious: Yes (Other)
  Sender: FDA-Public Use
  Company Number: PR-ABBOTT-13P-131-1111736-00

PATIENT
  Sex: Female
  Weight: 72.64 kg

DRUGS (13)
  1. HUMIRA [Suspect]
     Indication: RHEUMATOID ARTHRITIS
     Route: 058
     Dates: start: 2011, end: 201209
  2. HUMIRA [Suspect]
     Route: 058
     Dates: start: 201210, end: 201211
  3. HUMIRA [Suspect]
     Route: 058
     Dates: start: 20121129
  4. HUMIRA [Suspect]
     Route: 058
     Dates: end: 20130626
  5. HUMIRA [Suspect]
     Indication: RHEUMATOID ARTHRITIS
     Route: 058
     Dates: start: 201210, end: 201211
  6. HUMIRA [Suspect]
     Route: 058
     Dates: start: 20121129
  7. HUMIRA [Suspect]
     Route: 058
  8. METHOTREXATE [Concomitant]
     Indication: RHEUMATOID ARTHRITIS
     Dosage: 17.5MG WEEKLY
     Route: 048
     Dates: end: 2013
  9. ADVIL [Concomitant]
     Indication: PAIN
     Route: 048
  10. SYNTHROID [Concomitant]
     Indication: HYPOTHYROIDISM
     Route: 048
  11. FOLIC ACID [Concomitant]
     Indication: PRODUCT USED FOR UNKNOWN INDICATION
     Route: 048
  12. SINGULAIR [Concomitant]
     Indication: ASTHMA
     Route: 048
  13. VITAMIN D NOS [Concomitant]
     Indication: PRODUCT USED FOR UNKNOWN INDICATION
     Route: 048

REACTIONS (4)
  - Venous occlusion [Recovering/Resolving]
  - Local swelling [Recovered/Resolved]
  - Urinary tract infection [Recovered/Resolved]
  - Cardiovascular disorder [Not Recovered/Not Resolved]
